FAERS Safety Report 6831170-3 (Version None)
Quarter: 2010Q3

REPORT INFORMATION
  Report Type: 
  Country: None (occurrence: None)
  Receive Date: 20100709
  Receipt Date: 20100709
  Transmission Date: 20110219
  Serious: Yes (Other)
  Sender: FDA-Public Use
  Company Number: None

PATIENT
  Age: 61 Year
  Sex: Female
  Weight: 47.6277 kg

DRUGS (1)
  1. RECLAST [Suspect]

REACTIONS (2)
  - IRITIS [None]
  - NO THERAPEUTIC RESPONSE [None]
